FAERS Safety Report 6793165-8 (Version None)
Quarter: 2010Q2

REPORT INFORMATION
  Report Type: 
  Country: None (occurrence: None)
  Receive Date: 20100624
  Receipt Date: 20090904
  Transmission Date: 20101027
  Serious: Yes (Other)
  Sender: FDA-Public Use
  Company Number: US-MYLANLABS-2009S1011239

PATIENT
  Age: 76 Year
  Sex: Female

DRUGS (9)
  1. CLOZAPINE [Suspect]
     Route: 048
     Dates: end: 20090721
  2. COUMADIN [Concomitant]
     Route: 048
  3. LORAZEPAM [Concomitant]
     Route: 048
  4. CYMBALTA [Concomitant]
     Route: 048
  5. SENNA [Concomitant]
     Route: 048
  6. RISPERDAL [Concomitant]
     Route: 048
  7. ABILIFY [Concomitant]
     Route: 048
  8. BUSPAR [Concomitant]
     Route: 048
  9. TRICOR [Concomitant]
     Route: 048

REACTIONS (1)
  - GRANULOCYTOPENIA [None]
